FAERS Safety Report 14680658 (Version 4)
Quarter: 2019Q2

REPORT INFORMATION
  Report Type: Report from Study
  Country: JP (occurrence: JP)
  Receive Date: 20180326
  Receipt Date: 20190516
  Transmission Date: 20190711
  Serious: Yes (Hospitalization, Other)
  Sender: FDA-Public Use
  Company Number: JP-BIOGEN-2018BI00546495

PATIENT
  Age: 8 Month
  Sex: Male
  Weight: 8.28 kg

DRUGS (16)
  1. HOKUNALIN:TAPE [Concomitant]
     Active Substance: TULOBUTEROL
     Indication: SPUTUM RETENTION
     Route: 062
     Dates: start: 20181009
  2. CEFAZOLIN SODIUM. [Concomitant]
     Active Substance: CEFAZOLIN SODIUM
     Indication: REGURGITATION
     Route: 042
     Dates: start: 20180723, end: 20180727
  3. MANNITOL-S [Concomitant]
     Indication: RESPIRATORY FAILURE
     Route: 042
     Dates: start: 20180709, end: 20180710
  4. CARBOCISTEINE [Concomitant]
     Active Substance: CARBOCYSTEINE
     Indication: SPUTUM RETENTION
     Route: 050
     Dates: start: 20180105
  5. SPINRAZA [Suspect]
     Active Substance: NUSINERSEN
     Route: 050
     Dates: start: 20180201, end: 20180201
  6. CARBOCISTEINE [Concomitant]
     Active Substance: CARBOCYSTEINE
     Route: 050
  7. ACELIO [Concomitant]
     Active Substance: ACETAMINOPHEN
     Indication: SEDATIVE THERAPY
     Route: 042
     Dates: start: 20180723, end: 20180726
  8. PREDONINE [Concomitant]
     Active Substance: PREDNISOLONE
     Indication: RESPIRATORY FAILURE
     Dosage: 15
     Route: 042
     Dates: start: 20180709, end: 20180710
  9. SPINRAZA [Suspect]
     Active Substance: NUSINERSEN
     Indication: SPINAL MUSCULAR ATROPHY
     Route: 050
     Dates: start: 20180118, end: 20180118
  10. SPINRAZA [Suspect]
     Active Substance: NUSINERSEN
     Route: 050
     Dates: start: 20180215, end: 20180215
  11. SPINRAZA [Suspect]
     Active Substance: NUSINERSEN
     Route: 050
     Dates: start: 20180322, end: 20180322
  12. SPINRAZA [Suspect]
     Active Substance: NUSINERSEN
     Route: 050
     Dates: start: 20180802, end: 20180802
  13. SPINRAZA [Suspect]
     Active Substance: NUSINERSEN
     Route: 050
     Dates: start: 20181206, end: 20181206
  14. SPINRAZA [Suspect]
     Active Substance: NUSINERSEN
     Route: 050
     Dates: start: 20190425, end: 20190425
  15. INCREMIN [Concomitant]
     Active Substance: FERRIC PYROPHOSPHATE
     Indication: IRON DEFICIENCY ANAEMIA
     Route: 050
     Dates: start: 20180117, end: 20180711
  16. ESLAX [Concomitant]
     Active Substance: ROCURONIUM BROMIDE
     Indication: PNEUMONIA
     Route: 042
     Dates: start: 20181104, end: 20181104

REACTIONS (8)
  - Pneumonia aspiration [Recovered/Resolved]
  - Regurgitation [Recovered/Resolved]
  - Pneumonia [Recovered/Resolved]
  - Gastroenteritis rotavirus [Recovered/Resolved]
  - Respiratory failure [Recovered/Resolved]
  - Influenza [Recovered/Resolved]
  - Upper respiratory tract inflammation [Recovered/Resolved]
  - Bronchitis [Recovered/Resolved]

NARRATIVE: CASE EVENT DATE: 20180316
